FAERS Safety Report 23292255 (Version 1)
Quarter: 2023Q4

REPORT INFORMATION
  Report Type: Spontaneous
  Country: CN (occurrence: CN)
  Receive Date: 20231213
  Receipt Date: 20231213
  Transmission Date: 20240110
  Serious: Yes (Hospitalization)
  Sender: FDA-Public Use
  Company Number: CN-AMGEN-CHNSP2023217975

PATIENT
  Age: 7 Year
  Sex: Female
  Weight: 18 kg

DRUGS (2)
  1. BLINCYTO [Suspect]
     Active Substance: BLINATUMOMAB
     Indication: Chemotherapy
     Dosage: 5 MICROGRAM, 1 (INTRAVENOUS DRIP)
     Route: 042
     Dates: start: 20231121, end: 20231121
  2. STERILE WATER [Concomitant]
     Active Substance: WATER
     Indication: Chemotherapy
     Dosage: 3 MILLILITER, INTRAVENOUS DRIP
     Route: 042
     Dates: start: 20231121, end: 20231121

REACTIONS (1)
  - Hepatic function abnormal [Recovering/Resolving]

NARRATIVE: CASE EVENT DATE: 20231126
